FAERS Safety Report 18594947 (Version 3)
Quarter: 2021Q2

REPORT INFORMATION
  Report Type: Spontaneous
  Country: US (occurrence: US)
  Receive Date: 20201209
  Receipt Date: 20210614
  Transmission Date: 20210717
  Serious: Yes (Other)
  Sender: FDA-Public Use
  Company Number: US-GILEAD-2020-0507517

PATIENT
  Age: 57 Year
  Sex: Female
  Weight: 63.5 kg

DRUGS (32)
  1. ATRIPLA [Suspect]
     Active Substance: EFAVIRENZ\EMTRICITABINE\TENOFOVIR DISOPROXIL FUMARATE
     Indication: HIV INFECTION
     Dosage: UNK
     Route: 048
     Dates: start: 2008, end: 2013
  2. TRAZODONE [Concomitant]
     Active Substance: TRAZODONE HYDROCHLORIDE
  3. DIPHENHYDRAMINE. [Concomitant]
     Active Substance: DIPHENHYDRAMINE
  4. TIVICAY [Concomitant]
     Active Substance: DOLUTEGRAVIR SODIUM
  5. MELOXICAM. [Concomitant]
     Active Substance: MELOXICAM
  6. ATRIPLA [Suspect]
     Active Substance: EFAVIRENZ\EMTRICITABINE\TENOFOVIR DISOPROXIL FUMARATE
     Dosage: UNK
     Route: 048
     Dates: start: 20131009, end: 20141016
  7. ACETAMINOPHEN. [Concomitant]
     Active Substance: ACETAMINOPHEN
  8. OMEPRAZOLE. [Concomitant]
     Active Substance: OMEPRAZOLE
  9. NAPROXEN. [Concomitant]
     Active Substance: NAPROXEN
  10. SEROQUEL [Concomitant]
     Active Substance: QUETIAPINE FUMARATE
  11. ATORVASTATIN [Concomitant]
     Active Substance: ATORVASTATIN
  12. TRIUMEQ [Concomitant]
     Active Substance: ABACAVIR SULFATE\DOLUTEGRAVIR SODIUM\LAMIVUDINE
  13. PREDNISONE. [Concomitant]
     Active Substance: PREDNISONE
  14. LEVOFLOXACIN. [Concomitant]
     Active Substance: LEVOFLOXACIN
  15. LATUDA [Concomitant]
     Active Substance: LURASIDONE HYDROCHLORIDE
  16. ONDANSETRON [Concomitant]
     Active Substance: ONDANSETRON
  17. HYDROCODONE/ACETAMINOPHEN [Concomitant]
     Active Substance: ACETAMINOPHEN\HYDROCODONE
  18. LORAZEPAM. [Concomitant]
     Active Substance: LORAZEPAM
  19. TRAMADOL. [Concomitant]
     Active Substance: TRAMADOL
  20. EPZICOM [Concomitant]
     Active Substance: ABACAVIR SULFATE\LAMIVUDINE
  21. ATRIPLA [Suspect]
     Active Substance: EFAVIRENZ\EMTRICITABINE\TENOFOVIR DISOPROXIL FUMARATE
     Dosage: UNK
     Route: 048
     Dates: start: 20131009, end: 20141006
  22. IBUPROFEN. [Concomitant]
     Active Substance: IBUPROFEN
  23. QUETIAPINE FUMARATE. [Concomitant]
     Active Substance: QUETIAPINE FUMARATE
  24. LORATADINE. [Concomitant]
     Active Substance: LORATADINE
  25. DIAZEPAM. [Concomitant]
     Active Substance: DIAZEPAM
  26. CEPHALEXINE [Concomitant]
     Active Substance: CEPHALEXIN
  27. AMOXICILLIN. [Concomitant]
     Active Substance: AMOXICILLIN
  28. CARISOPRODOL. [Concomitant]
     Active Substance: CARISOPRODOL
  29. GABAPENTIN. [Concomitant]
     Active Substance: GABAPENTIN
  30. AZITHROMYCIN ANHYDROUS. [Concomitant]
     Active Substance: AZITHROMYCIN ANHYDROUS
  31. DICLOFENAC SODIUM. [Concomitant]
     Active Substance: DICLOFENAC SODIUM
  32. FLUTICASONE. [Concomitant]
     Active Substance: FLUTICASONE

REACTIONS (9)
  - Blood creatinine increased [Unknown]
  - Chronic kidney disease [Not Recovered/Not Resolved]
  - Emotional distress [Unknown]
  - Pain [Unknown]
  - Tooth loss [Recovered/Resolved]
  - Tooth fracture [Unknown]
  - Tooth loss [Unknown]
  - Vitamin D deficiency [Unknown]
  - Bone loss [Unknown]

NARRATIVE: CASE EVENT DATE: 20131218
